FAERS Safety Report 4367491-6 (Version None)
Quarter: 2004Q2

REPORT INFORMATION
  Report Type: 
  Country: None (occurrence: None)
  Receive Date: 20040601
  Receipt Date: 20040517
  Transmission Date: 20050107
  Serious: Yes (Death, Hospitalization, Disabling)
  Sender: FDA-Public Use
  Company Number: 200413842US

PATIENT
  Age: 81 Year
  Sex: Female
  Weight: 86.6 kg

DRUGS (13)
  1. LOVENOX [Suspect]
     Route: 058
     Dates: start: 20040505, end: 20040510
  2. WARFARIN SODIUM [Concomitant]
     Dosage: DOSE: UNK
     Dates: start: 20040505, end: 20040509
  3. FUROSEMIDE [Concomitant]
     Dosage: DOSE: UNK
  4. INSULIN NOS [Concomitant]
     Dosage: DOSE: UNK
  5. LORAZEPAM [Concomitant]
     Dosage: DOSE: UNK
  6. METOPROLOL TARTRATE [Concomitant]
     Dosage: DOSE: UNK
  7. COUGH AND COLD PREPARATIONS [Concomitant]
     Dosage: DOSE: UNK
  8. GLYBURIDE [Concomitant]
     Dosage: DOSE: UNK
  9. FOSINOPRIL SODIUM [Concomitant]
     Dosage: DOSE: UNK
  10. CAPTOPRIL [Concomitant]
     Dosage: DOSE: UNK
  11. DOCUSATE [Concomitant]
     Dosage: DOSE: UNK
  12. DIGOXIN [Concomitant]
     Dosage: DOSE: UNK
  13. CIPRO [Concomitant]
     Dosage: DOSE: UNK

REACTIONS (13)
  - ACTIVATED PARTIAL THROMBOPLASTIN TIME PROLONGED [None]
  - BACK PAIN [None]
  - FAECAL INCONTINENCE [None]
  - HAEMORRHAGE [None]
  - INTERNATIONAL NORMALISED RATIO DECREASED [None]
  - PARAESTHESIA [None]
  - PARALYSIS [None]
  - PARAPLEGIA [None]
  - PLATELET COUNT DECREASED [None]
  - POST PROCEDURAL COMPLICATION [None]
  - SPINAL CORD COMPRESSION [None]
  - SPINAL HAEMATOMA [None]
  - URINARY INCONTINENCE [None]
